FAERS Safety Report 6787761-1 (Version None)
Quarter: 2010Q2

REPORT INFORMATION
  Report Type: 
  Country: None (occurrence: None)
  Receive Date: 20100623
  Receipt Date: 20070619
  Transmission Date: 20101027
  Serious: No
  Sender: FDA-Public Use
  Company Number: US-PFIZER INC-2007050207

PATIENT
  Sex: Female
  Weight: 52.16 kg

DRUGS (13)
  1. GENOTROPIN [Suspect]
     Indication: GROWTH HORMONE DEFICIENCY
     Dosage: DAILY
     Route: 058
     Dates: start: 20070309, end: 20070320
  2. GENOTROPIN [Suspect]
     Dosage: DAILY
     Route: 058
     Dates: start: 20070401, end: 20070411
  3. GENOTROPIN [Suspect]
     Dosage: DAILY
     Route: 058
     Dates: start: 20070416, end: 20070423
  4. PREDNISOLONE [Concomitant]
  5. LEVOXYL [Concomitant]
  6. AXID [Concomitant]
  7. PREVACID [Concomitant]
  8. DDAVP [Concomitant]
  9. MAG-OX [Concomitant]
  10. OSCAL 500-D [Concomitant]
  11. VITAMIN C [Concomitant]
  12. ASPIRIN [Concomitant]
  13. VITAMIN E [Concomitant]

REACTIONS (1)
  - OEDEMA PERIPHERAL [None]
